FAERS Safety Report 15082875 (Version 1)
Quarter: 2018Q2

REPORT INFORMATION
  Report Type: Spontaneous
  Country: JP (occurrence: JP)
  Receive Date: 20180628
  Receipt Date: 20180628
  Transmission Date: 20180711
  Serious: Yes (Hospitalization, Other)
  Sender: FDA-Public Use
  Company Number: JP-009507513-1805JPN001847J

PATIENT
  Age: 82 Year
  Sex: Male
  Weight: 71 kg

DRUGS (10)
  1. TAMSULOSIN HYDROCHLORIDE. [Concomitant]
     Active Substance: TAMSULOSIN HYDROCHLORIDE
     Indication: BENIGN PROSTATIC HYPERPLASIA
     Dosage: 0.2 MG, QD
     Route: 048
  2. CALONAL [Concomitant]
     Active Substance: ACETAMINOPHEN
     Indication: OSTEOARTHRITIS
     Dosage: 500 MG, QID
     Route: 048
     Dates: start: 20180501, end: 20180515
  3. KEYTRUDA [Suspect]
     Active Substance: PEMBROLIZUMAB
     Indication: LUNG ADENOCARCINOMA
     Dosage: 200 MG, Q3W
     Route: 041
     Dates: start: 20180420, end: 20180420
  4. THYRADIN S [Concomitant]
     Active Substance: LEVOTHYROXINE SODIUM
     Indication: HYPOTHYROIDISM
     Dosage: 75 MICROGRAM, QD
     Route: 048
     Dates: start: 20150113
  5. COVERSYL [Concomitant]
     Active Substance: PERINDOPRIL
     Indication: HYPERTENSION
     Dosage: 8 MG, QD
     Route: 048
     Dates: start: 20110531
  6. LYRICA [Concomitant]
     Active Substance: PREGABALIN
     Indication: NEUROPATHY PERIPHERAL
     Dosage: 450 MG, QD
     Route: 048
     Dates: start: 20150310, end: 20180601
  7. TRAMCET [Concomitant]
     Active Substance: ACETAMINOPHEN\TRAMADOL
     Indication: OSTEOARTHRITIS
     Dosage: 4 DF, UNK
     Route: 048
     Dates: start: 20180420, end: 20180501
  8. EPADEL S [Concomitant]
     Active Substance: ICOSAPENT ETHYL
     Indication: NEUROPATHY PERIPHERAL
     Dosage: 900 MG, BID
     Route: 048
     Dates: start: 20130507, end: 20180515
  9. ATELEC [Concomitant]
     Active Substance: CILNIDIPINE
     Indication: HYPERTENSION
     Dosage: 5 MG, QD
     Route: 048
     Dates: start: 20110913
  10. FEBURIC [Concomitant]
     Active Substance: FEBUXOSTAT
     Indication: HYPERURICAEMIA
     Dosage: 10 MG, QD
     Route: 048
     Dates: start: 20141216, end: 20180601

REACTIONS (3)
  - Blood creatine phosphokinase increased [Recovering/Resolving]
  - Rhabdomyolysis [Recovered/Resolved]
  - Liver disorder [Recovering/Resolving]

NARRATIVE: CASE EVENT DATE: 201805
